FAERS Safety Report 8443332-2 (Version None)
Quarter: 2012Q2

REPORT INFORMATION
  Report Type: 
  Country: None (occurrence: None)
  Receive Date: 20120618
  Receipt Date: 20120612
  Transmission Date: 20120825
  Serious: Yes (Life-Threatening, Hospitalization, Other)
  Sender: FDA-Public Use
  Company Number: PHHY2012DK051090

PATIENT
  Age: 56 Year
  Sex: Female

DRUGS (3)
  1. ANGIOTENSIN CONVERTING ENZYME BLOCKERS [Concomitant]
  2. ANGIOTENSIN II ANTAGONISTS [Concomitant]
  3. METFORMIN HCL [Suspect]
     Indication: TYPE 2 DIABETES MELLITUS

REACTIONS (10)
  - CONFUSIONAL STATE [None]
  - HYPOTENSION [None]
  - LACTIC ACIDOSIS [None]
  - DIARRHOEA [None]
  - WHITE BLOOD CELL COUNT INCREASED [None]
  - ANURIA [None]
  - BLOOD CREATININE INCREASED [None]
  - BLOOD POTASSIUM INCREASED [None]
  - VOMITING [None]
  - TACHYPNOEA [None]
